FAERS Safety Report 17480659 (Version 1)
Quarter: 2020Q1

REPORT INFORMATION
  Report Type: Spontaneous
  Country: CZ (occurrence: CZ)
  Receive Date: 20200301
  Receipt Date: 20200301
  Transmission Date: 20200409
  Serious: Yes (Other)
  Sender: FDA-Public Use
  Company Number: NVSC2020CZ055628

PATIENT
  Age: 60 Year
  Sex: Male

DRUGS (4)
  1. VOTRIENT [Suspect]
     Active Substance: PAZOPANIB HYDROCHLORIDE
     Indication: RENAL CANCER
     Dosage: 400 MG, QD
     Route: 065
     Dates: start: 20141216, end: 20150116
  2. VOTRIENT [Suspect]
     Active Substance: PAZOPANIB HYDROCHLORIDE
     Dosage: 800 MG, QD
     Route: 065
     Dates: start: 20151120, end: 20170728
  3. VOTRIENT [Suspect]
     Active Substance: PAZOPANIB HYDROCHLORIDE
     Dosage: 800 MG, QD
     Route: 065
     Dates: start: 20150116, end: 20150828
  4. VOTRIENT [Suspect]
     Active Substance: PAZOPANIB HYDROCHLORIDE
     Dosage: 400 MG, QD
     Route: 065
     Dates: start: 20151022, end: 20151120

REACTIONS (17)
  - Pelvic cyst [Unknown]
  - Aspartate aminotransferase increased [Recovered/Resolved]
  - Gamma-glutamyltransferase increased [Recovered/Resolved]
  - Metastases to lung [Recovering/Resolving]
  - Hyperuricaemia [Unknown]
  - Single functional kidney [Unknown]
  - Metastases to bone [Unknown]
  - Arthralgia [Unknown]
  - Osteoarthritis [Unknown]
  - Liver function test increased [Recovered/Resolved]
  - Alanine aminotransferase increased [Recovered/Resolved]
  - Renal cancer [Recovering/Resolving]
  - Liver function test increased [Recovered/Resolved]
  - Malignant neoplasm progression [Unknown]
  - Hypotonia [Unknown]
  - Renal vein thrombosis [Unknown]
  - Weight increased [Unknown]

NARRATIVE: CASE EVENT DATE: 20150429
